FAERS Safety Report 4878380-2 (Version None)
Quarter: 2005Q4

REPORT INFORMATION
  Report Type: 
  Country: None (occurrence: None)
  Receive Date: 20051209
  Receipt Date: 20050801
  Transmission Date: 20060501
  Serious: No
  Sender: FDA-Public Use
  Company Number: SUS1-2005-00594

PATIENT
  Sex: Female

DRUGS (2)
  1. FOSRENOL [Suspect]
     Dosage: 500 MG, TWO TABS 3X/DAY
     Dates: start: 20050214
  2. EPOGEN [Concomitant]

REACTIONS (1)
  - ANAEMIA [None]
